FAERS Safety Report 11791665 (Version 1)
Quarter: 2015Q4

REPORT INFORMATION
  Report Type: Other
  Country: GB (occurrence: GB)
  Receive Date: 20151201
  Receipt Date: 20151201
  Transmission Date: 20160305
  Serious: Yes (Other)
  Sender: FDA-Public Use
  Company Number: GB-PERRIGO-15GB012200

PATIENT

DRUGS (2)
  1. IBUPROFEN 16028/0027 200 MG [Suspect]
     Active Substance: IBUPROFEN
     Indication: BACK PAIN
     Dosage: 200 MG APPROXIMATELY 12 TIMES DAILY
     Route: 048
  2. COCODAMOL [Concomitant]
     Active Substance: ACETAMINOPHEN\CODEINE PHOSPHATE
     Indication: PRODUCT USED FOR UNKNOWN INDICATION
     Dosage: 8/500MG. ONLY OCCASIONALLY.
     Route: 065

REACTIONS (7)
  - Abnormal behaviour [Unknown]
  - Hypokinesia [Unknown]
  - Aggression [Recovered/Resolved]
  - Disorientation [Recovered/Resolved]
  - Confusional state [Recovered/Resolved]
  - Communication disorder [Unknown]
  - Dissociation [Recovered/Resolved]
